FAERS Safety Report 24628544 (Version 1)
Quarter: 2024Q4

REPORT INFORMATION
  Report Type: Spontaneous
  Country: CN (occurrence: CN)
  Receive Date: 20241117
  Receipt Date: 20241117
  Transmission Date: 20250115
  Serious: Yes (Other)
  Sender: BEIGENE
  Company Number: CN-BEIGENE-BGN-2024-018012

PATIENT

DRUGS (2)
  1. TISLELIZUMAB [Suspect]
     Active Substance: TISLELIZUMAB
     Indication: Malignant neoplasm of renal pelvis
     Dosage: 200 MILLIGRAM
     Route: 041
     Dates: start: 20240626
  2. DISITAMAB VEDOTIN [Suspect]
     Active Substance: DISITAMAB VEDOTIN
     Indication: Malignant neoplasm of renal pelvis
     Dosage: 120 MILLIGRAM
     Route: 041
     Dates: start: 20240625

REACTIONS (1)
  - Hepatitis cholestatic [Recovering/Resolving]

NARRATIVE: CASE EVENT DATE: 20241025
